FAERS Safety Report 13897783 (Version 1)
Quarter: 2017Q3

REPORT INFORMATION
  Report Type: Spontaneous
  Country: US (occurrence: US)
  Receive Date: 20170823
  Receipt Date: 20170823
  Transmission Date: 20171127
  Serious: No
  Sender: FDA-Public Use
  Company Number: US-GILEAD-2017-0289546

PATIENT
  Age: 62 Year
  Sex: Female

DRUGS (4)
  1. SOVALDI [Suspect]
     Active Substance: SOFOSBUVIR
     Indication: CHRONIC HEPATITIS C
     Dosage: 400 MG, QD
     Route: 048
     Dates: start: 20140502, end: 20140722
  2. RIBAVIRIN. [Concomitant]
     Active Substance: RIBAVIRIN
     Indication: CHRONIC HEPATITIS C
     Dosage: 1000 MG, QD
     Route: 048
     Dates: start: 20140502, end: 20140727
  3. DIPHENHYDRAMINE HYDROCHLORIDE. [Concomitant]
     Active Substance: DIPHENHYDRAMINE HYDROCHLORIDE
     Indication: HYPERSENSITIVITY
  4. PEGINTERFERON ALFA-2A. [Concomitant]
     Active Substance: PEGINTERFERON ALFA-2A
     Indication: CHRONIC HEPATITIS C
     Dosage: 180 MCG, Q1 WK
     Route: 058
     Dates: start: 20140502

REACTIONS (11)
  - Hypersensitivity [Unknown]
  - Mouth ulceration [Recovered/Resolved]
  - White blood cell count abnormal [Unknown]
  - Eye oedema [Unknown]
  - Oral infection [Recovered/Resolved]
  - Pruritus [Recovered/Resolved]
  - Injection site pain [Unknown]
  - Face oedema [Unknown]
  - Rash [Unknown]
  - Oropharyngeal pain [Unknown]
  - Oral pain [Not Recovered/Not Resolved]
